FAERS Safety Report 11331850 (Version 1)
Quarter: 2015Q3

REPORT INFORMATION
  Report Type: Spontaneous
  Country: US (occurrence: US)
  Receive Date: 20150803
  Receipt Date: 20150803
  Transmission Date: 20151125
  Serious: Yes (Hospitalization, Other)
  Sender: FDA-Public Use
  Company Number: US-ELI_LILLY_AND_COMPANY-US200803003707

PATIENT
  Age: 43 Year
  Sex: Male
  Weight: 94.33 kg

DRUGS (7)
  1. LITHIUM. [Concomitant]
     Active Substance: LITHIUM
     Dates: start: 20010208
  2. GLUCOTROL [Concomitant]
     Active Substance: GLIPIZIDE
  3. SEROQUEL [Concomitant]
     Active Substance: QUETIAPINE FUMARATE
     Indication: BIPOLAR DISORDER
  4. ZYPREXA [Suspect]
     Active Substance: OLANZAPINE
     Indication: BIPOLAR DISORDER
     Dosage: 2.5 TO 5 MG
     Dates: start: 20010129
  5. ZYPREXA [Suspect]
     Active Substance: OLANZAPINE
     Dosage: 2.5 TO 5 MG
     Dates: start: 20030207
  6. ZYPREXA [Suspect]
     Active Substance: OLANZAPINE
     Dosage: 2.5 TO 5 MG
     Dates: start: 20030101
  7. RISPERIDONE. [Concomitant]
     Active Substance: RISPERIDONE
     Dates: start: 200001, end: 200701

REACTIONS (6)
  - Hypertension [Unknown]
  - Diabetic coma [Unknown]
  - Diabetes mellitus [Not Recovered/Not Resolved]
  - Diabetic coma [Unknown]
  - Blood cholesterol abnormal [Unknown]
  - Diabetic coma [Unknown]

NARRATIVE: CASE EVENT DATE: 200101
